FAERS Safety Report 16750791 (Version 1)
Quarter: 2019Q3

REPORT INFORMATION
  Report Type: Spontaneous
  Country: US (occurrence: US)
  Receive Date: 20190710
  Receipt Date: 20190710
  Transmission Date: 20191005
  Serious: No
  Sender: FDA-Public Use
  Company Number: None

PATIENT
  Age: 55 Year
  Sex: Male

DRUGS (1)
  1. STELARA [Suspect]
     Active Substance: USTEKINUMAB
     Dates: start: 2016

REACTIONS (5)
  - Pain [None]
  - Therapeutic product effect decreased [None]
  - Tooth disorder [None]
  - Infection [None]
  - Tooth extraction [None]

NARRATIVE: CASE EVENT DATE: 20190710
